FAERS Safety Report 8076460-4 (Version None)
Quarter: 2012Q1

REPORT INFORMATION
  Report Type: 
  Country: None (occurrence: None)
  Receive Date: 20120125
  Receipt Date: 20120125
  Transmission Date: 20120608
  Serious: Yes (Hospitalization)
  Sender: FDA-Public Use
  Company Number: None

PATIENT
  Sex: Male
  Weight: 99.8 kg

DRUGS (2)
  1. CISPLATIN [Suspect]
     Dosage: 163 MG
     Dates: end: 20090630
  2. TAXOTERE [Suspect]
     Dosage: 163 MG
     Dates: end: 20090630

REACTIONS (2)
  - RENAL FAILURE ACUTE [None]
  - ABDOMINAL PAIN [None]
